FAERS Safety Report 24064267 (Version 1)
Quarter: 2024Q3

REPORT INFORMATION
  Report Type: Spontaneous
  Country: US (occurrence: US)
  Receive Date: 20240709
  Receipt Date: 20240709
  Transmission Date: 20241016
  Serious: Yes (Other)
  Sender: STRIDES
  Company Number: US-STRIDES ARCOLAB LIMITED-2024SP007996

PATIENT
  Age: 7 Decade
  Sex: Male

DRUGS (15)
  1. PREDNISOLONE [Suspect]
     Active Substance: PREDNISOLONE
     Indication: Keratitis
     Dosage: UNK, (PREDNISOLONE)
     Route: 065
  2. PREDNISOLONE [Suspect]
     Active Substance: PREDNISOLONE
     Indication: Limbal stem cell deficiency
     Dosage: 60 MILLIGRAM, QD (PREDNISONE)
     Route: 048
  3. PREDNISOLONE [Suspect]
     Active Substance: PREDNISOLONE
     Indication: Pemphigoid
     Dosage: 40 MILLIGRAM, OD (PREDNISONE)
     Route: 048
  4. PREDNISOLONE [Suspect]
     Active Substance: PREDNISOLONE
     Dosage: UNK (TAPERED) (PREDNISONE)
     Route: 048
  5. ERYTHROMYCIN [Suspect]
     Active Substance: ERYTHROMYCIN
     Indication: Keratitis
     Dosage: UNK
     Route: 065
  6. ERYTHROMYCIN [Suspect]
     Active Substance: ERYTHROMYCIN
     Indication: Limbal stem cell deficiency
  7. DURVALUMAB [Concomitant]
     Active Substance: DURVALUMAB
     Indication: Non-small cell lung cancer
     Dosage: UNK, ONCE A MONTH
     Route: 065
     Dates: start: 202112
  8. DORZOLAMIDE\TIMOLOL [Concomitant]
     Active Substance: DORZOLAMIDE\TIMOLOL
     Indication: Open angle glaucoma
     Dosage: UNK, BID
     Route: 065
  9. BRIMONIDINE [Concomitant]
     Active Substance: BRIMONIDINE TARTRATE
     Indication: Open angle glaucoma
     Dosage: UNK
     Route: 065
     Dates: end: 202203
  10. MOXIFLOXACIN [Concomitant]
     Active Substance: MOXIFLOXACIN
     Indication: Keratitis
     Dosage: UNK, QID
     Route: 065
  11. MOXIFLOXACIN [Concomitant]
     Active Substance: MOXIFLOXACIN
     Indication: Limbal stem cell deficiency
  12. POLYMYXIN B SULFATE\TRIMETHOPRIM [Concomitant]
     Active Substance: POLYMYXIN B SULFATE\TRIMETHOPRIM
     Indication: Keratitis
     Dosage: UNK
     Route: 065
  13. POLYMYXIN B SULFATE\TRIMETHOPRIM [Concomitant]
     Active Substance: POLYMYXIN B SULFATE\TRIMETHOPRIM
     Indication: Limbal stem cell deficiency
  14. FLUOROMETHOLONE [Concomitant]
     Active Substance: FLUOROMETHOLONE
     Indication: Keratitis
     Dosage: UNK
     Route: 065
  15. FLUOROMETHOLONE [Concomitant]
     Active Substance: FLUOROMETHOLONE
     Indication: Limbal stem cell deficiency

REACTIONS (2)
  - Drug ineffective [Unknown]
  - Off label use [Unknown]

NARRATIVE: CASE EVENT DATE: 20210101
